FAERS Safety Report 13074047 (Version 1)
Quarter: 2016Q4

REPORT INFORMATION
  Report Type: Other
  Country: GB (occurrence: US)
  Receive Date: 20161229
  Receipt Date: 20161229
  Transmission Date: 20170207
  Serious: Yes (Other)
  Sender: FDA-Public Use
  Company Number: US-INTERNATIONAL MEDICATION SYSTEMS, LIMITED-1061402

PATIENT
  Age: 15 Year
  Sex: Male

DRUGS (5)
  1. DUONEB [Concomitant]
     Active Substance: ALBUTEROL SULFATE\IPRATROPIUM BROMIDE
  2. SOLU-MEDROL [Concomitant]
     Active Substance: METHYLPREDNISOLONE SODIUM SUCCINATE
  3. SALBUTAMOL [Concomitant]
     Active Substance: ALBUTEROL
  4. KETAMINE HYDROCHLORIDE. [Suspect]
     Active Substance: KETAMINE HYDROCHLORIDE
  5. EPINEPHRINE. [Suspect]
     Active Substance: EPINEPHRINE
     Indication: STATUS ASTHMATICUS

REACTIONS (3)
  - Myocardial ischaemia [Unknown]
  - Systolic hypertension [Unknown]
  - Diastolic hypertension [Unknown]
